FAERS Safety Report 7054622-2 (Version None)
Quarter: 2010Q4

REPORT INFORMATION
  Report Type: 
  Country: None (occurrence: None)
  Receive Date: 20101015
  Receipt Date: 20100713
  Transmission Date: 20110411
  Serious: No
  Sender: FDA-Public Use
  Company Number: USA/USA/10/0014156

PATIENT
  Age: 71 Year
  Sex: Female

DRUGS (1)
  1. FLUOXETINE [Suspect]
     Indication: PHOBIA
     Dosage: 180 MG, 1 IN 1 WK, PER ORAL
     Route: 048
     Dates: start: 20100710, end: 20100701

REACTIONS (4)
  - ANXIETY [None]
  - DRUG INEFFECTIVE [None]
  - IRRITABILITY [None]
  - PRODUCT SUBSTITUTION ISSUE [None]
